FAERS Safety Report 21542458 (Version 1)
Quarter: 2022Q4

REPORT INFORMATION
  Report Type: Spontaneous
  Country: CN (occurrence: CN)
  Receive Date: 20221102
  Receipt Date: 20221102
  Transmission Date: 20230113
  Serious: Yes (Other)
  Sender: FDA-Public Use
  Company Number: CN-009507513-2210CHN010415

PATIENT
  Age: 47 Year
  Sex: Male

DRUGS (3)
  1. KEYTRUDA [Suspect]
     Active Substance: PEMBROLIZUMAB
     Indication: External ear neoplasm malignant
     Dosage: 200 MILLIGRAM, Q3W
     Dates: start: 20200312, end: 20210119
  2. KEYTRUDA [Suspect]
     Active Substance: PEMBROLIZUMAB
     Dosage: UNK
     Dates: start: 20220207
  3. CAMRELIZUMAB [Suspect]
     Active Substance: CAMRELIZUMAB
     Indication: External ear neoplasm malignant
     Dosage: 200 MILLIGRAM 3 CYCLES
     Dates: start: 20211102, end: 20211216

REACTIONS (16)
  - Brain injury [Unknown]
  - Deafness unilateral [Unknown]
  - Haemorrhage [Unknown]
  - IIIrd nerve injury [Unknown]
  - IVth nerve injury [Unknown]
  - VIth nerve injury [Unknown]
  - Malignant neoplasm progression [Unknown]
  - Immune-mediated dermatitis [Recovered/Resolved]
  - Therapy partial responder [Unknown]
  - Reactive capillary endothelial proliferation [Unknown]
  - VIIth nerve injury [Unknown]
  - Pruritus [Unknown]
  - Rash maculo-papular [Unknown]
  - Headache [Recovering/Resolving]
  - Drug intolerance [Unknown]
  - Vth nerve injury [Unknown]

NARRATIVE: CASE EVENT DATE: 20200527
